FAERS Safety Report 20232619 (Version 1)
Quarter: 2021Q4

REPORT INFORMATION
  Report Type: Spontaneous
  Country: US (occurrence: US)
  Receive Date: 20211227
  Receipt Date: 20211227
  Transmission Date: 20220303
  Serious: Yes (Hospitalization)
  Sender: FDA-Public Use
  Company Number: US-AMNEAL PHARMACEUTICALS-2021-AMRX-05097

PATIENT
  Age: 69 Year
  Sex: Male

DRUGS (2)
  1. GABAPENTIN [Suspect]
     Active Substance: GABAPENTIN
     Indication: Product used for unknown indication
     Dosage: 9600 MILLIGRAM, DAILY
     Route: 065
  2. GABAPENTIN [Suspect]
     Active Substance: GABAPENTIN
     Dosage: LOWER DOSE
     Route: 065

REACTIONS (7)
  - Myokymia [Recovered/Resolved]
  - Myoclonus [Recovered/Resolved]
  - Gait inability [Recovered/Resolved]
  - Fall [Unknown]
  - Tremor [Recovered/Resolved]
  - Toxicity to various agents [Recovered/Resolved]
  - Prescribed overdose [Unknown]
